FAERS Safety Report 14657405 (Version 1)
Quarter: 2018Q1

REPORT INFORMATION
  Report Type: Spontaneous
  Country: US (occurrence: US)
  Receive Date: 20180320
  Receipt Date: 20180320
  Transmission Date: 20180509
  Serious: Yes (Hospitalization, Congenital Anomaly, Other)
  Sender: FDA-Public Use
  Company Number: US-ABBVIE-18K-163-2289102-00

PATIENT
  Age: 0 Day
  Sex: Male

DRUGS (3)
  1. HUMIRA [Suspect]
     Active Substance: ADALIMUMAB
     Route: 063
  2. HUMIRA [Suspect]
     Active Substance: ADALIMUMAB
     Indication: MATERNAL EXPOSURE TIMING UNSPECIFIED
     Route: 064
  3. PITOCIN [Concomitant]
     Active Substance: OXYTOCIN
     Indication: MATERNAL EXPOSURE TIMING UNSPECIFIED

REACTIONS (7)
  - Breech presentation [Recovered/Resolved]
  - Exposure via breast milk [Unknown]
  - Pyrexia [Recovered/Resolved]
  - Sickle cell trait [Not Recovered/Not Resolved]
  - Sepsis [Recovered/Resolved]
  - Congenital central nervous system anomaly [Not Recovered/Not Resolved]
  - Foetal exposure during pregnancy [Unknown]

NARRATIVE: CASE EVENT DATE: 20180104
